FAERS Safety Report 6780810-6 (Version None)
Quarter: 2010Q2

REPORT INFORMATION
  Report Type: 
  Country: None (occurrence: None)
  Receive Date: 20100621
  Receipt Date: 20100416
  Transmission Date: 20101027
  Serious: Yes (Hospitalization, Disabling, Other)
  Sender: FDA-Public Use
  Company Number: US-BAYER-200921666NA

PATIENT
  Age: 23 Year
  Sex: Female
  Weight: 104 kg

DRUGS (5)
  1. YAZ [Suspect]
     Indication: CONTRACEPTION
     Route: 048
     Dates: start: 20060607, end: 20070519
  2. YASMIN [Suspect]
     Indication: CONTRACEPTION
     Route: 048
     Dates: start: 20060607, end: 20070519
  3. WARFARIN [Concomitant]
     Route: 065
     Dates: start: 20070519, end: 20071101
  4. MIDOL [Concomitant]
  5. EXCEDRIN (MIGRAINE) [Concomitant]

REACTIONS (5)
  - ANXIETY [None]
  - APHASIA [None]
  - HEADACHE [None]
  - HEMIPARESIS [None]
  - SUPERIOR SAGITTAL SINUS THROMBOSIS [None]
